FAERS Safety Report 11465662 (Version 3)
Quarter: 2015Q4

REPORT INFORMATION
  Report Type: Report from Study
  Country: AT (occurrence: AT)
  Receive Date: 20150907
  Receipt Date: 20151015
  Transmission Date: 20160304
  Serious: Yes (Other)
  Sender: FDA-Public Use
  Company Number: AT-BIOGENIDEC-2015BI039639

PATIENT
  Sex: Female

DRUGS (3)
  1. EFECTIN [Concomitant]
     Active Substance: VENLAFAXINE HYDROCHLORIDE
  2. AVONEX [Suspect]
     Active Substance: INTERFERON BETA-1A
     Indication: PRODUCT USED FOR UNKNOWN INDICATION
     Route: 030
     Dates: start: 20130606, end: 201411
  3. BRUFEN [Concomitant]
     Active Substance: IBUPROFEN

REACTIONS (2)
  - Maternal exposure during pregnancy [Unknown]
  - Breech presentation [Unknown]

NARRATIVE: CASE EVENT DATE: 20150708
